FAERS Safety Report 22173297 (Version 2)
Quarter: 2023Q2

REPORT INFORMATION
  Report Type: Report from Study
  Country: US (occurrence: None)
  Receive Date: 20230404
  Receipt Date: 20230421
  Transmission Date: 20230721
  Serious: Yes (Hospitalization)
  Sender: FDA-Public Use
  Company Number: US-Eisai Medical Research-EC-2023-137627

PATIENT
  Age: 75 Year
  Sex: Female
  Weight: 46 kg

DRUGS (21)
  1. LENVIMA [Suspect]
     Active Substance: LENVATINIB
     Indication: Thyroid cancer
     Route: 048
     Dates: start: 20221021, end: 20230323
  2. MAGNESIUM [Concomitant]
     Active Substance: MAGNESIUM
     Indication: Blood magnesium decreased
     Dosage: DOSE AND FREQUENCY UNKNOWN
     Route: 065
     Dates: start: 2022
  3. OXYGEN [Concomitant]
     Active Substance: OXYGEN
  4. PROAIR HFA [Concomitant]
     Active Substance: ALBUTEROL SULFATE
  5. SPIRIVA [Concomitant]
     Active Substance: TIOTROPIUM BROMIDE MONOHYDRATE
  6. ADVAIR HFA [Concomitant]
     Active Substance: FLUTICASONE PROPIONATE\SALMETEROL XINAFOATE
  7. PILOCARPINE [Concomitant]
     Active Substance: PILOCARPINE
     Route: 048
  8. LEVOXYL [Concomitant]
     Active Substance: LEVOTHYROXINE SODIUM
  9. CARBIDOPA\LEVODOPA [Concomitant]
     Active Substance: CARBIDOPA\LEVODOPA
  10. JARDIANCE [Concomitant]
     Active Substance: EMPAGLIFLOZIN
  11. ZOLPIDEM TARTRATE [Concomitant]
     Active Substance: ZOLPIDEM TARTRATE
  12. SIMVASTATIN [Concomitant]
     Active Substance: SIMVASTATIN
  13. METFORMIN [Concomitant]
     Active Substance: METFORMIN HYDROCHLORIDE
  14. DETROL LA [Concomitant]
     Active Substance: TOLTERODINE TARTRATE
  15. OSPHENA [Concomitant]
     Active Substance: OSPEMIFENE
  16. ATENOLOL [Concomitant]
     Active Substance: ATENOLOL
  17. JANUVIA [Concomitant]
     Active Substance: SITAGLIPTIN PHOSPHATE
  18. PAROXETINE [Concomitant]
     Active Substance: PAROXETINE
  19. OMEPRAZOLE [Concomitant]
     Active Substance: OMEPRAZOLE
  20. LEVEMIR [Concomitant]
     Active Substance: INSULIN DETEMIR
  21. NOVOLOG [Concomitant]
     Active Substance: INSULIN ASPART

REACTIONS (2)
  - Rib fracture [Not Recovered/Not Resolved]
  - Pneumothorax [Unknown]

NARRATIVE: CASE EVENT DATE: 20230323
